FAERS Safety Report 6003955-7 (Version None)
Quarter: 2008Q4

REPORT INFORMATION
  Report Type: 
  Country: None (occurrence: None)
  Receive Date: 20081212
  Receipt Date: 20081127
  Transmission Date: 20090506
  Serious: Yes (Other)
  Sender: FDA-Public Use
  Company Number: 2008S1021261

PATIENT
  Age: 41 Year
  Sex: Female

DRUGS (2)
  1. PAROXETINE HCL [Suspect]
     Indication: DEPRESSION
     Dosage: 20 MG; DAILY; ORAL
     Route: 048
     Dates: start: 20081103, end: 20081118
  2. ALPRAZOLAM [Concomitant]

REACTIONS (3)
  - EYELID OEDEMA [None]
  - LIP OEDEMA [None]
  - URTICARIA [None]
